FAERS Safety Report 21912446 (Version 2)
Quarter: 2023Q1

REPORT INFORMATION
  Report Type: Spontaneous
  Country: US (occurrence: US)
  Receive Date: 20230125
  Receipt Date: 20230314
  Transmission Date: 20230417
  Serious: No
  Sender: FDA-Public Use
  Company Number: US-NEUROCRINE BIOSCIENCES INC.-2023NBI00322

PATIENT

DRUGS (3)
  1. INGREZZA [Suspect]
     Active Substance: VALBENAZINE
     Indication: Tic
     Dosage: 80 MILLIGRAM, QD
     Route: 065
     Dates: start: 202211, end: 202212
  2. UNSPECIFIED INGREDIENT [Concomitant]
     Active Substance: UNSPECIFIED INGREDIENT
     Dosage: UNK
  3. TOPAMAX [Concomitant]
     Active Substance: TOPIRAMATE
     Indication: Tic
     Dosage: 100 MILLIGRAM, BID
     Route: 048

REACTIONS (3)
  - Musculoskeletal stiffness [Unknown]
  - Drooling [Unknown]
  - Off label use [Unknown]
